FAERS Safety Report 6642961-6 (Version None)
Quarter: 2010Q1

REPORT INFORMATION
  Report Type: 
  Country: None (occurrence: None)
  Receive Date: 20100319
  Receipt Date: 20100309
  Transmission Date: 20100710
  Serious: Yes (Death, Hospitalization, Disabling, Other)
  Sender: FDA-Public Use
  Company Number: A0321749A

PATIENT
  Age: 50 Year
  Sex: Male
  Weight: 110.65 kg

DRUGS (7)
  1. AVANDIA [Suspect]
     Dosage: 4MG PER DAY
     Route: 048
     Dates: start: 19990818, end: 19991201
  2. ZOLOFT [Concomitant]
     Indication: DEPRESSION
     Dosage: 25MG PER DAY
     Route: 048
     Dates: start: 19990801, end: 19990901
  3. ZOLOFT [Concomitant]
     Dosage: 50MG PER DAY
     Route: 048
     Dates: start: 19990901
  4. CHROMIUM PICOLINATE [Concomitant]
     Dates: start: 19990801
  5. VITAMIN C [Concomitant]
  6. SAW PALMETTO [Concomitant]
     Dates: start: 19990801
  7. AUGMENTIN [Concomitant]
     Indication: MUSCLE DISORDER
     Dosage: 875MG TWICE PER DAY
     Route: 048
     Dates: start: 19990818, end: 19990827

REACTIONS (71)
  - ACUTE HEPATIC FAILURE [None]
  - ALANINE AMINOTRANSFERASE INCREASED [None]
  - APLASTIC ANAEMIA [None]
  - ARTERIOSCLEROSIS [None]
  - ASCITES [None]
  - ASPARTATE AMINOTRANSFERASE INCREASED [None]
  - ATRIAL FIBRILLATION [None]
  - BLOOD ALKALINE PHOSPHATASE INCREASED [None]
  - BLOOD BILIRUBIN INCREASED [None]
  - BLOOD CREATININE INCREASED [None]
  - BLOOD UREA INCREASED [None]
  - BRADYCARDIA [None]
  - BRONCHITIS [None]
  - CARDIOMEGALY [None]
  - CHILLS [None]
  - CIRCULATORY COLLAPSE [None]
  - CONFUSIONAL STATE [None]
  - CONSTIPATION [None]
  - CONVULSION [None]
  - COUGH [None]
  - DECREASED APPETITE [None]
  - DIABETIC NEPHROPATHY [None]
  - DISORIENTATION [None]
  - DYSPNOEA [None]
  - ENCEPHALOPATHY [None]
  - GAMMA-GLUTAMYLTRANSFERASE INCREASED [None]
  - HEPATIC MASS [None]
  - HEPATIC NECROSIS [None]
  - HEPATITIS CHOLESTATIC [None]
  - HEPATOMEGALY [None]
  - HEPATOTOXICITY [None]
  - HYPERGLYCAEMIA [None]
  - HYPERHIDROSIS [None]
  - HYPONATRAEMIA [None]
  - HYPOTENSION [None]
  - HYPOVOLAEMIA [None]
  - IRON DEFICIENCY [None]
  - JAUNDICE [None]
  - JAUNDICE CHOLESTATIC [None]
  - LACTIC ACIDOSIS [None]
  - LEUKOPENIA [None]
  - LYMPHADENOPATHY [None]
  - MALAISE [None]
  - MUCOCUTANEOUS CANDIDIASIS [None]
  - NAUSEA [None]
  - OEDEMA [None]
  - PAIN [None]
  - PANCYTOPENIA [None]
  - PLEURAL EFFUSION [None]
  - PORTAL HYPERTENSION [None]
  - POSTNASAL DRIP [None]
  - PROTHROMBIN TIME PROLONGED [None]
  - PULMONARY FIBROSIS [None]
  - PULMONARY MYCOSIS [None]
  - PULMONARY OEDEMA [None]
  - PYREXIA [None]
  - RENAL FAILURE ACUTE [None]
  - RENAL TUBULAR NECROSIS [None]
  - RESPIRATORY DISTRESS [None]
  - RHONCHI [None]
  - SEPSIS [None]
  - SHOCK [None]
  - SINUSITIS [None]
  - SPLENOMEGALY [None]
  - TACHYCARDIA [None]
  - THROMBOCYTOPENIA [None]
  - VARICES OESOPHAGEAL [None]
  - VARICOSE VEIN [None]
  - VOMITING [None]
  - WEIGHT DECREASED [None]
  - WHEEZING [None]
